FAERS Safety Report 4435383-X (Version None)
Quarter: 2004Q3

REPORT INFORMATION
  Report Type: 
  Country: None (occurrence: None)
  Receive Date: 20040826
  Receipt Date: 20040811
  Transmission Date: 20050211
  Serious: Yes (Hospitalization)
  Sender: FDA-Public Use
  Company Number: T04-GER-03542-01

PATIENT
  Age: 83 Year
  Sex: Female

DRUGS (12)
  1. CIPRAMIL (CITALOPRAM HYDROBROMIDE) [Suspect]
     Indication: DEPRESSION
     Dosage: 20 MG QD PO
     Route: 048
     Dates: start: 20030601, end: 20031023
  2. BELOC (METOPROLOL TARTRATE) [Suspect]
     Indication: ATRIAL FIBRILLATION
     Dosage: 95 MG QD PO
     Route: 048
     Dates: start: 20030101, end: 20031012
  3. BELOC (METOPROLOL TARTRATE) [Suspect]
     Indication: ATRIAL FIBRILLATION
     Dates: start: 20031012, end: 20031015
  4. BELOC (METOPROLOL TARTRATE) [Suspect]
     Indication: ATRIAL FIBRILLATION
     Dosage: 47.5 MG QD PO
     Route: 048
     Dates: start: 20031016
  5. CALCIMAGON (CALCIUM CARBONATE) [Concomitant]
  6. ACTRAPID HUMAN (INSULIN HUMAN) [Concomitant]
  7. RAMIPRIL [Concomitant]
  8. DIGITOXIN [Concomitant]
  9. FALITHROM (PHENPROCOUMON) (PHENPROCOUMON) [Concomitant]
  10. NORVASC [Concomitant]
  11. HUMAN PROTAPHANE (INSULIN HUMAN INJECTION, ISOPHANE) [Concomitant]
  12. TAMOXIFEN CITRATE [Concomitant]

REACTIONS (6)
  - ARRHYTHMIA [None]
  - BLOOD CREATININE INCREASED [None]
  - BLOOD PRESSURE INCREASED [None]
  - BRADYCARDIA [None]
  - DEPRESSION [None]
  - DRUG INTERACTION [None]
